FAERS Safety Report 7043966-6 (Version None)
Quarter: 2010Q4

REPORT INFORMATION
  Report Type: 
  Country: None (occurrence: None)
  Receive Date: 20101008
  Receipt Date: 20101008
  Transmission Date: 20110411
  Serious: Yes (Hospitalization)
  Sender: FDA-Public Use
  Company Number: None

PATIENT
  Age: 56 Year
  Sex: Male

DRUGS (1)
  1. CETUXIMAB [Suspect]
     Indication: COLON CANCER STAGE IV
     Dosage: 800 MG ONCE IV
     Route: 042
     Dates: start: 20101006, end: 20101006

REACTIONS (2)
  - BRONCHOSPASM [None]
  - RESPIRATORY DISTRESS [None]
